FAERS Safety Report 4443550-4 (Version None)
Quarter: 2004Q3

REPORT INFORMATION
  Report Type: 
  Country: None (occurrence: None)
  Receive Date: 20040901
  Receipt Date: 20040816
  Transmission Date: 20050211
  Serious: Yes (Hospitalization)
  Sender: FDA-Public Use
  Company Number: DSA_81019_2004

PATIENT
  Age: 43 Year
  Sex: Male
  Weight: 93.8946 kg

DRUGS (3)
  1. XYREM [Suspect]
     Indication: FIBROMYALGIA
     Dosage: 4 G TWICE NIGHTLY PO
     Route: 048
     Dates: start: 20030801, end: 20040201
  2. XYREM [Suspect]
     Indication: INSOMNIA
     Dosage: 4 G TWICE NIGHTLY PO
     Route: 048
     Dates: start: 20030801, end: 20040201
  3. OXYCONTIN [Concomitant]

REACTIONS (5)
  - ACUTE PSYCHOSIS [None]
  - FEELING ABNORMAL [None]
  - MENTAL IMPAIRMENT [None]
  - PARANOIA [None]
  - TREATMENT NONCOMPLIANCE [None]
